FAERS Safety Report 22214746 (Version 1)
Quarter: 2023Q2

REPORT INFORMATION
  Report Type: Spontaneous
  Country: US (occurrence: US)
  Receive Date: 20230415
  Receipt Date: 20230415
  Transmission Date: 20230721
  Serious: No
  Sender: FDA-Public Use
  Company Number: US-JNJFOC-20190939925

PATIENT
  Sex: Male
  Weight: 109.87 kg

DRUGS (1)
  1. IMODIUM MULTI-SYMPTOM RELIEF [Suspect]
     Active Substance: DIMETHICONE\LOPERAMIDE HYDROCHLORIDE
     Indication: Diarrhoea
     Dosage: 2 OR 3 OR 4 TIMES DAILY
     Route: 048
     Dates: end: 20190923

REACTIONS (2)
  - Incorrect dose administered [Unknown]
  - Off label use [Unknown]
